FAERS Safety Report 6133589-5 (Version None)
Quarter: 2009Q1

REPORT INFORMATION
  Report Type: 
  Country: None (occurrence: None)
  Receive Date: 20090326
  Receipt Date: 20090317
  Transmission Date: 20090719
  Serious: Yes (Other)
  Sender: FDA-Public Use
  Company Number: US-ABBOTT-09P-163-0563748-00

PATIENT
  Sex: Female
  Weight: 43.13 kg

DRUGS (3)
  1. SYNTHROID [Suspect]
     Indication: HYPOTHYROIDISM
     Route: 048
     Dates: start: 19910101
  2. ZEBETA [Suspect]
     Indication: HYPERTENSION
  3. AMLODIPINE W/VALSARTAN [Suspect]
     Indication: HYPERTENSION
     Route: 048
     Dates: start: 20080701

REACTIONS (10)
  - ABDOMINAL PAIN UPPER [None]
  - ARTHRALGIA [None]
  - BACK PAIN [None]
  - BARRETT'S OESOPHAGUS [None]
  - HYPERTENSION [None]
  - INSOMNIA [None]
  - JOINT DISLOCATION [None]
  - NAUSEA [None]
  - PELVIC FRACTURE [None]
  - SUICIDAL IDEATION [None]
